FAERS Safety Report 16737136 (Version 2)
Quarter: 2019Q3

REPORT INFORMATION
  Report Type: Spontaneous
  Country: FR (occurrence: FR)
  Receive Date: 20190823
  Receipt Date: 20190829
  Transmission Date: 20191005
  Serious: Yes (Death)
  Sender: FDA-Public Use
  Company Number: FR-ASTRAZENECA-2019SF18406

PATIENT
  Age: 82 Year
  Sex: Male
  Weight: 88 kg

DRUGS (21)
  1. KARDEGIC [Suspect]
     Active Substance: ASPIRIN DL-LYSINE
     Indication: PRODUCT USED FOR UNKNOWN INDICATION
     Route: 048
     Dates: end: 20190722
  2. SKENAN [Concomitant]
     Active Substance: MORPHINE SULFATE
  3. EPINITRIL [Concomitant]
     Active Substance: NITROGLYCERIN
     Dosage: 5MG/24H
     Route: 062
  4. LASILIX [Concomitant]
     Active Substance: FUROSEMIDE
  5. ACUPAN [Suspect]
     Active Substance: NEFOPAM HYDROCHLORIDE
     Indication: BACK PAIN
     Route: 065
     Dates: start: 20190708, end: 20190716
  6. CYANOCOBALAMINE [Concomitant]
     Active Substance: CYANOCOBALAMIN
  7. ESOMEPRAZOLE. [Suspect]
     Active Substance: ESOMEPRAZOLE MAGNESIUM
     Indication: PRODUCT USED FOR UNKNOWN INDICATION
     Route: 048
     Dates: end: 20190722
  8. LOVENOX [Concomitant]
     Active Substance: ENOXAPARIN SODIUM
  9. XANAX [Concomitant]
     Active Substance: ALPRAZOLAM
  10. PAMIDRONATE DISODIUM. [Suspect]
     Active Substance: PAMIDRONATE DISODIUM
     Indication: SPINAL FRACTURE
     Route: 042
     Dates: start: 20190720, end: 20190722
  11. EFFEXOR [Concomitant]
     Active Substance: VENLAFAXINE HYDROCHLORIDE
  12. PROCORALAN [Concomitant]
     Active Substance: IVABRADINE
  13. STILNOX [Concomitant]
     Active Substance: ZOLPIDEM TARTRATE
  14. KETOPROFEN. [Suspect]
     Active Substance: KETOPROFEN
     Indication: BACK PAIN
     Route: 048
     Dates: start: 20190708, end: 20190716
  15. SPECIAFOLDINE [Concomitant]
     Active Substance: FOLIC ACID
  16. DAFALGAN [Concomitant]
     Active Substance: ACETAMINOPHEN
  17. ACTISKENAN [Concomitant]
     Active Substance: MORPHINE SULFATE
  18. TRIATEC [RAMIPRIL] [Suspect]
     Active Substance: RAMIPRIL
     Indication: HYPERTENSION
     Route: 048
     Dates: end: 20190722
  19. TIMOFEROL [Concomitant]
     Active Substance: ASCORBIC ACID\FERROUS SULFATE
  20. UROREC [Concomitant]
     Active Substance: SILODOSIN
  21. SMECTA [Concomitant]
     Active Substance: MONTMORILLONITE

REACTIONS (2)
  - Acute kidney injury [Fatal]
  - Condition aggravated [Fatal]

NARRATIVE: CASE EVENT DATE: 20190716
